FAERS Safety Report 13675073 (Version 2)
Quarter: 2017Q2

REPORT INFORMATION
  Report Type: Spontaneous
  Country: US (occurrence: US)
  Receive Date: 20170621
  Receipt Date: 20170626
  Transmission Date: 20170830
  Serious: No
  Sender: FDA-Public Use
  Company Number: US-PFIZER INC-2017269963

PATIENT
  Age: 59 Year
  Sex: Female
  Weight: 50 kg

DRUGS (7)
  1. TRAMADOL. [Concomitant]
     Active Substance: TRAMADOL
     Indication: PAIN
     Dosage: ONE TABLET TWICE A DAY (IN THE MORNING AND CLOSER TO BED TIME)
     Route: 048
     Dates: start: 2017
  2. AZATHIOPRINE. [Concomitant]
     Active Substance: AZATHIOPRINE
     Dosage: 100 MG, TWICE A DAY
     Route: 048
     Dates: start: 201702
  3. VITAMIN D2 [Concomitant]
     Active Substance: ERGOCALCIFEROL
     Indication: VITAMIN D DECREASED
     Dosage: 3 DF, WEEKLY (ONE CAPSULE BY MOUTH 3 TIMES A WEEK)
     Route: 048
     Dates: start: 201612
  4. LYRICA [Suspect]
     Active Substance: PREGABALIN
     Indication: FIBROMYALGIA
     Dosage: UNK
     Route: 048
     Dates: start: 2016
  5. PREDNISONE. [Concomitant]
     Active Substance: PREDNISONE
     Indication: SYSTEMIC LUPUS ERYTHEMATOSUS
     Dosage: 10 MG, TWICE A DAY (DOSE ALTERS AND SHE DOES NOT TAKE IT DAILY)
     Route: 048
     Dates: end: 201704
  6. LYRICA [Suspect]
     Active Substance: PREGABALIN
     Dosage: 150 MG, TWICE A DAY
     Route: 048
     Dates: start: 2017
  7. AMBIEN [Concomitant]
     Active Substance: ZOLPIDEM TARTRATE
     Indication: SLEEP DISORDER
     Dosage: 10 MG, ONCE A DAY (AT BEDTIME)
     Route: 048

REACTIONS (2)
  - Drug effect delayed [Unknown]
  - Intentional product use issue [Unknown]
